FAERS Safety Report 4404621-1 (Version None)
Quarter: 2004Q3

REPORT INFORMATION
  Report Type: 
  Country: None (occurrence: None)
  Receive Date: 20040721
  Receipt Date: 20040721
  Transmission Date: 20050211
  Serious: Yes (Hospitalization)
  Sender: FDA-Public Use
  Company Number: None

PATIENT
  Sex: Female
  Weight: 70.7611 kg

DRUGS (1)
  1. TARCEVA [Suspect]
     Dosage: 150 MG DAILY ORAL
     Route: 048
     Dates: start: 20040707, end: 20040720

REACTIONS (2)
  - DIFFICULTY IN WALKING [None]
  - DYSPNOEA [None]
